FAERS Safety Report 10310045 (Version 2)
Quarter: 2015Q2

REPORT INFORMATION
  Report Type: Spontaneous
  Country: US (occurrence: US)
  Receive Date: 20140717
  Receipt Date: 20150413
  Transmission Date: 20150821
  Serious: Yes (Hospitalization)
  Sender: FDA-Public Use
  Company Number: US-BAYER-2014-107323

PATIENT
  Age: 27 Year
  Sex: Female
  Weight: 97.51 kg

DRUGS (12)
  1. BUSPAR [Concomitant]
     Active Substance: BUSPIRONE HYDROCHLORIDE
     Dosage: UNK UNK, QD
     Route: 048
  2. OXYCODONE/APAP [Concomitant]
     Active Substance: ACETAMINOPHEN\OXYCODONE HYDROCHLORIDE
     Dosage: 5-325 MG TABLETS, 1-2 EVERY 4-6 HOURS AS NEEDED
     Route: 048
  3. FLEXERIL [Concomitant]
     Active Substance: CYCLOBENZAPRINE HYDROCHLORIDE
     Indication: MUSCLE RELAXANT THERAPY
     Dosage: 10 MG, TID, AS NEEDED
     Route: 048
     Dates: start: 200902, end: 201212
  4. PRILOSEC [Concomitant]
     Active Substance: OMEPRAZOLE MAGNESIUM
  5. PERCOCET [Concomitant]
     Active Substance: ACETAMINOPHEN\OXYCODONE HYDROCHLORIDE
     Indication: BACK PAIN
     Dosage: 5-325 MG TABLETS, 1-2 EVERY 4-6 HOURS, PRN
     Route: 048
     Dates: start: 200801
  6. GEODON [Concomitant]
     Active Substance: ZIPRASIDONE HYDROCHLORIDE\ZIPRASIDONE MESYLATE
     Dosage: APPROXIMATELY 10 TABLETS ON 20-MAY-2010; 160 MG IN THE MORNING, 80 MG AT NIGHT
     Route: 048
  7. VITAMIN D [Concomitant]
     Active Substance: CHOLECALCIFEROL
     Route: 048
  8. PHENAZOPYRIDINE. [Concomitant]
     Active Substance: PHENAZOPYRIDINE
     Dosage: 200 MG, UNK, 10 DISPENSED
  9. YAZ [Suspect]
     Active Substance: DROSPIRENONE\ETHINYL ESTRADIOL
     Indication: CONTRACEPTION
     Dosage: UNK
     Dates: start: 200901, end: 200912
  10. SULFAMETHOXAZOLE/TRIMETHOPRIM [Concomitant]
     Active Substance: SULFAMETHOXAZOLE\TRIMETHOPRIM
     Dosage: 800-160 MG TABLETS, 20 DISPENSED
  11. RISPERDAL [Concomitant]
     Active Substance: RISPERIDONE
  12. DILAUDID [Concomitant]
     Active Substance: HYDROMORPHONE HYDROCHLORIDE
     Route: 042

REACTIONS (15)
  - Deep vein thrombosis [None]
  - Pain [None]
  - Chest discomfort [None]
  - Painful respiration [None]
  - Pain in extremity [None]
  - General physical health deterioration [None]
  - Fear of disease [None]
  - Pulmonary embolism [None]
  - Asthma [None]
  - Fear of death [None]
  - Injury [None]
  - Anxiety [None]
  - Muscle spasms [None]
  - Emotional distress [None]
  - Dyspnoea [None]

NARRATIVE: CASE EVENT DATE: 20100616
